FAERS Safety Report 14585867 (Version 5)
Quarter: 2018Q2

REPORT INFORMATION
  Report Type: Report from Study
  Country: GB (occurrence: GB)
  Receive Date: 20180301
  Receipt Date: 20180607
  Transmission Date: 20180711
  Serious: Yes (Hospitalization)
  Sender: FDA-Public Use
  Company Number: GB-ROCHE-2076771

PATIENT
  Age: 70 Year
  Sex: Male

DRUGS (21)
  1. OBINUTUZUMAB. [Suspect]
     Active Substance: OBINUTUZUMAB
     Indication: MANTLE CELL LYMPHOMA REFRACTORY
     Dosage: EVERY CYCLE 1 (D1+2, D5 AND D8)?1000 MG D1
     Route: 042
     Dates: start: 20170921, end: 20171005
  2. OBINUTUZUMAB. [Suspect]
     Active Substance: OBINUTUZUMAB
     Dosage: CYCLE 4 DAY 1?CYCLE 2-6: 1000 MG D1?CYCLE 4 (D1) DAILY?CYCLE 3 TO CYCLE 6 ; CYCLE 7- CYCLE 23 (MAINT
     Route: 042
     Dates: start: 20180119, end: 20180119
  3. VENETOCLAX. [Suspect]
     Active Substance: VENETOCLAX
     Dosage: EVERY / / CYCLE 4
     Route: 048
     Dates: start: 20180119, end: 20180122
  4. DOXORUBICIN [Concomitant]
     Active Substance: DOXORUBICIN
     Route: 065
     Dates: start: 20180220
  5. ONCOVIN [Concomitant]
     Active Substance: VINCRISTINE SULFATE
     Route: 065
     Dates: start: 20180220
  6. PREDNISOLONE. [Concomitant]
     Active Substance: PREDNISOLONE
     Route: 065
     Dates: start: 20180220
  7. OBINUTUZUMAB. [Suspect]
     Active Substance: OBINUTUZUMAB
     Dosage: CYCLE 3?CYCLE 2 (D1) DAILY?CYCLE 2-6: 1000 MG D1?CYCLE 3 TO CYCLE 6 ; CYCLE 7- CYCLE 23 (MAINTENANCE
     Route: 042
     Dates: start: 20171222, end: 20171222
  8. VENETOCLAX. [Suspect]
     Active Substance: VENETOCLAX
     Dosage: CYCLE 1BIS DAILY?CYCLE 1: 20MG/D AT W1, 50MG/D AT W2, 100 MG AT W3 AND 200 MG/D AT W4 ; ?CYCLE 2-6:
     Route: 048
     Dates: start: 20171020, end: 20171026
  9. OBINUTUZUMAB. [Suspect]
     Active Substance: OBINUTUZUMAB
     Dosage: CYCLE 1 DAY 1?1000 MG D1
     Route: 042
     Dates: start: 20171020, end: 20171020
  10. VENETOCLAX. [Suspect]
     Active Substance: VENETOCLAX
     Indication: MANTLE CELL LYMPHOMA REFRACTORY
     Dosage: CYCLE 1BIS DAILY?CYCLE 1: 20MG/D AT W1, 50MG/D AT W2, 100 MG AT W3 AND 200 MG/D AT W4 ; ?CYCLE 2-6:
     Route: 048
     Dates: start: 20171027, end: 20171102
  11. VENETOCLAX. [Suspect]
     Active Substance: VENETOCLAX
     Dosage: CYCLE 1BIS DAILY?CYCLE 1: 20MG/D AT W1, 50MG/D AT W2, 100 MG AT W3 AND 200 MG/D AT W4 ; ?CYCLE 2-6:
     Route: 048
     Dates: start: 20171114, end: 20171120
  12. VENETOCLAX. [Suspect]
     Active Substance: VENETOCLAX
     Dosage: EVERY CYCLE 4 ?CYCLE 1: 20MG/D AT W1, 50MG/D AT W2, 100 MG AT W3 AND 200 MG/D AT W4 ; ?CYCLE 2-6: 40
     Route: 048
     Dates: start: 20180119, end: 20180215
  13. VENETOCLAX. [Suspect]
     Active Substance: VENETOCLAX
     Dosage: CYCLE 2 STOPPED DUE TO ADVERSE EVENT (AE)?CYCLE 1: 20MG/D AT W1, 50MG/D AT W2, 100 MG AT W3 AND 200
     Route: 048
     Dates: start: 20171121, end: 20171127
  14. RITUXIMAB. [Concomitant]
     Active Substance: RITUXIMAB
     Route: 065
     Dates: start: 20180220
  15. VENETOCLAX. [Suspect]
     Active Substance: VENETOCLAX
     Dosage: CYCLE 2 STOPPED DUE TO ADVERSE EVENT (AE)?CYCLE 1: 20MG/D AT W1, 50MG/D AT W2, 100 MG AT W3 AND 200
     Route: 048
     Dates: start: 20171201, end: 20171218
  16. VENETOCLAX. [Suspect]
     Active Substance: VENETOCLAX
     Dosage: CYCLE 3 STOPPED DUE TO ADVERSE EVENT (AE)?CYCLE 1: 20MG/D AT W1, 50MG/D AT W2, 100 MG AT W3 AND 200
     Route: 048
     Dates: start: 20171222, end: 20180104
  17. CYCLOPHOSPHAMIDE. [Concomitant]
     Active Substance: CYCLOPHOSPHAMIDE
     Route: 065
     Dates: start: 20180220
  18. OBINUTUZUMAB. [Suspect]
     Active Substance: OBINUTUZUMAB
     Dosage: CYCLE 2 DAY 1?CYCLE 2-6: 1000 MG D1?CYCLE 3 TO CYCLE 6 ; CYCLE 7- CYCLE 23 (MAINTENANCE): 1000 MG D1
     Route: 042
     Dates: start: 20171121, end: 20171121
  19. VENETOCLAX. [Suspect]
     Active Substance: VENETOCLAX
     Dosage: CYCLE 1BIS DAILY?CYCLE 1: 20MG/D AT W1, 50MG/D AT W2, 100 MG AT W3 AND 200 MG/D AT W4 ; ?CYCLE 2-6:
     Route: 048
     Dates: start: 20171103, end: 20171109
  20. VENETOCLAX. [Suspect]
     Active Substance: VENETOCLAX
     Dosage: CYCLE 1BIS AND 2
     Route: 048
     Dates: start: 20171020, end: 20171127
  21. IBRUTINIB [Suspect]
     Active Substance: IBRUTINIB
     Indication: MANTLE CELL LYMPHOMA REFRACTORY
     Dosage: CYCLE 1?C1: 560 MG D2 - 28 ?560 MG D1-28 (UNTIL PROGRESSION) ?C2-6: 560 MG D1-28  ?C3 TO C6; C7-C23
     Route: 048
     Dates: start: 20170922, end: 20180215

REACTIONS (3)
  - Neutropenic sepsis [Recovered/Resolved]
  - Febrile neutropenia [Recovered/Resolved]
  - Urinary tract infection [Recovered/Resolved]

NARRATIVE: CASE EVENT DATE: 20171127
